FAERS Safety Report 12716993 (Version 1)
Quarter: 2016Q3

REPORT INFORMATION
  Report Type: Spontaneous
  Country: US (occurrence: US)
  Receive Date: 20160906
  Receipt Date: 20160906
  Transmission Date: 20161109
  Serious: Yes (Hospitalization, Other)
  Sender: FDA-Public Use
  Company Number: US-B.I. PHARMACEUTICALS,INC./RIDGEFIELD-2016-BI-56866BP

PATIENT
  Age: 67 Year
  Sex: Male

DRUGS (1)
  1. PRADAXA [Suspect]
     Active Substance: DABIGATRAN ETEXILATE MESYLATE
     Indication: ATRIAL FIBRILLATION
     Dosage: 300 MG
     Route: 048
     Dates: start: 2012

REACTIONS (8)
  - Abasia [Recovered/Resolved]
  - Spinal compression fracture [Not Recovered/Not Resolved]
  - Dyspnoea [Recovered/Resolved]
  - Plasma cell myeloma [Not Recovered/Not Resolved]
  - Pneumonia [Recovered/Resolved]
  - Blood creatinine increased [Recovered/Resolved]
  - Pain [Not Recovered/Not Resolved]
  - Angioedema [Recovered/Resolved]

NARRATIVE: CASE EVENT DATE: 201601
